FAERS Safety Report 10372428 (Version 2)
Quarter: 2014Q4

REPORT INFORMATION
  Report Type: Spontaneous
  Country: US (occurrence: US)
  Receive Date: 20140808
  Receipt Date: 20141205
  Transmission Date: 20150528
  Serious: No
  Sender: FDA-Public Use
  Company Number: US-BRISTOL-MYERS SQUIBB COMPANY-21009485

PATIENT
  Age: 38 Year
  Sex: Female
  Weight: 67.57 kg

DRUGS (4)
  1. ALBUTEROL. [Concomitant]
     Active Substance: ALBUTEROL
  2. SPRYCEL [Suspect]
     Active Substance: DASATINIB
     Indication: CHRONIC MYELOID LEUKAEMIA
     Route: 048
     Dates: start: 20140405
  3. LIPITOR [Concomitant]
     Active Substance: ATORVASTATIN CALCIUM
  4. ESTRADIOL. [Concomitant]
     Active Substance: ESTRADIOL

REACTIONS (5)
  - Hypoaesthesia [Unknown]
  - Peripheral swelling [Unknown]
  - Headache [Unknown]
  - Paraesthesia [Unknown]
  - Pain [Unknown]

NARRATIVE: CASE EVENT DATE: 2014
